FAERS Safety Report 26102358 (Version 1)
Quarter: 2025Q4

REPORT INFORMATION
  Report Type: Spontaneous
  Country: RU (occurrence: RU)
  Receive Date: 20251128
  Receipt Date: 20251128
  Transmission Date: 20260118
  Serious: Yes (Other)
  Sender: NOVARTIS
  Company Number: RU-002147023-NVSC2025RU181280

PATIENT
  Age: 71 Year
  Sex: Female

DRUGS (2)
  1. TAFINLAR [Suspect]
     Active Substance: DABRAFENIB MESYLATE
     Indication: Malignant melanoma
     Dosage: 75 MG, BID, 2 TABLETS PER DAY
     Route: 048
     Dates: start: 202309
  2. MEKINIST [Suspect]
     Active Substance: TRAMETINIB DIMETHYL SULFOXIDE
     Indication: Product used for unknown indication
     Dosage: 2 MG, QD
     Route: 048
     Dates: start: 202309

REACTIONS (2)
  - Lymphadenopathy [Not Recovered/Not Resolved]
  - Soft tissue mass [Not Recovered/Not Resolved]

NARRATIVE: CASE EVENT DATE: 20231215
